FAERS Safety Report 24538165 (Version 2)
Quarter: 2024Q4

REPORT INFORMATION
  Report Type: Other
  Country: GB (occurrence: GB)
  Receive Date: 20241023
  Receipt Date: 20241204
  Transmission Date: 20250114
  Serious: Yes (Life-Threatening, Hospitalization, Disabling, Other)
  Sender: GLENMARK
  Company Number: GB-GLENMARK PHARMACEUTICALS-2024GMK094791

PATIENT

DRUGS (126)
  1. OMEPRAZOLE [Interacting]
     Active Substance: OMEPRAZOLE
     Indication: Dyspepsia
     Dosage: 20 MILLIGRAM, QD (20 MG, QD 20 MG, ONCE PER DAY (Q24H) (DOSAGE FORM CAPSULE)
     Route: 048
     Dates: start: 20110525
  2. OMEPRAZOLE [Interacting]
     Active Substance: OMEPRAZOLE
     Dosage: 20 MILLIGRAM, QD (20 MG, ONCE PER DAY) (DOSAGE FORM: CAPSULE)
     Route: 048
  3. AMITRIPTYLINE [Interacting]
     Active Substance: AMITRIPTYLINE
     Indication: Neuralgia
     Dosage: UNK, UNK (AT NIGHT)UNK,UNK
     Route: 065
  4. AMITRIPTYLINE [Interacting]
     Active Substance: AMITRIPTYLINE
     Indication: Serotonin syndrome
     Dosage: UNK
     Route: 065
  5. AMITRIPTYLINE [Interacting]
     Active Substance: AMITRIPTYLINE
     Indication: Muscle spasms
     Dosage: 25 MILLIGRAM, OD(5MG AT NIGHT25 MG, ONCE PER DAY (25 MG AT NIGHT)  )
     Route: 065
     Dates: start: 20110810
  6. AMITRIPTYLINE [Interacting]
     Active Substance: AMITRIPTYLINE
     Indication: Drug withdrawal syndrome
     Dosage: UNK
     Route: 065
  7. CODEINE [Interacting]
     Active Substance: CODEINE
     Indication: Serotonin syndrome
     Dosage: 30 MILLIGRAM, QID(30 MG, 4 TIMES PER DAY  )
     Route: 048
     Dates: start: 2008, end: 2008
  8. CODEINE [Interacting]
     Active Substance: CODEINE
     Indication: Analgesic therapy
     Dosage: UNK(15-30 MG/ 24 - EVERY HOURUNK, UNK (EVERY 24 HOURS) (15-30 MG)  )
     Route: 048
     Dates: start: 20110615, end: 20110723
  9. CODEINE [Interacting]
     Active Substance: CODEINE
     Dosage: UNK
     Route: 048
     Dates: start: 20110224, end: 20110410
  10. CODEINE [Interacting]
     Active Substance: CODEINE
     Dosage: 30 MILLIGRAM
     Route: 048
     Dates: start: 2002, end: 2002
  11. CODEINE [Interacting]
     Active Substance: CODEINE
     Dosage: 30 MILLIGRAM, QID
     Route: 048
     Dates: start: 20110615, end: 20110723
  12. DIAZEPAM [Interacting]
     Active Substance: DIAZEPAM
     Indication: Serotonin syndrome
     Dosage: 5 MILLIGRAM(5 MG QDS AND NOW ON 2-2-4 MG)
     Route: 048
     Dates: start: 20110725
  13. DIAZEPAM [Interacting]
     Active Substance: DIAZEPAM
     Indication: Muscle spasms
     Dosage: UNK(5 MG QDS AND NOW ON 2-2-4 MG)
     Route: 048
     Dates: start: 20110725
  14. DIAZEPAM [Interacting]
     Active Substance: DIAZEPAM
     Indication: Depression
     Dosage: 5 MILLIGRAM(5 MG, 4 TIMES PER DAY (20 MG, QD 5 MILLIGRAM, QID (5 MG QDS AND NOW)  )
     Route: 048
     Dates: start: 20110725
  15. DIAZEPAM [Interacting]
     Active Substance: DIAZEPAM
     Dosage: 20 MILLIGRAM, QD (20 MG, QD 5 MILLIGRAM, QID (5 MG QDS AND NOW ON 2-2-4 MG))
     Route: 048
     Dates: start: 20110725, end: 20110725
  16. DIAZEPAM [Interacting]
     Active Substance: DIAZEPAM
     Dosage: 8 MILLIGRAM, QD (8 MILLIGRAM, DAILY)
     Route: 065
     Dates: start: 20110725
  17. DIAZEPAM [Interacting]
     Active Substance: DIAZEPAM
     Dosage: UNK
     Route: 065
     Dates: start: 20110725
  18. DIAZEPAM [Interacting]
     Active Substance: DIAZEPAM
     Dosage: 8 MILLIGRAM, QID(8 MG, 4 TIMES P)ER DAY
     Route: 048
     Dates: start: 20110725
  19. DIAZEPAM [Interacting]
     Active Substance: DIAZEPAM
     Dosage: UNK
     Route: 065
  20. DIAZEPAM [Interacting]
     Active Substance: DIAZEPAM
     Dosage: 8 MILLIGRAM (8 MG, UNK (EVERY 24 HOURS))
     Route: 048
  21. PAROXETINE [Interacting]
     Active Substance: PAROXETINE
     Indication: Depression
     Dosage: UNK
     Route: 048
     Dates: start: 1996, end: 201105
  22. PAROXETINE [Interacting]
     Active Substance: PAROXETINE
     Indication: Post-traumatic stress disorder
     Dosage: 40 MILLIGRAM, OD(40 MG, ONCE PER DAY  )
     Route: 048
     Dates: start: 19990801, end: 20110706
  23. PAROXETINE [Interacting]
     Active Substance: PAROXETINE
     Dosage: 60 MILLIGRAM, TID(60 MG, QD (20 MG 3 TIMES PER DAY)60 MG,UNK  )
     Route: 048
     Dates: start: 1997, end: 201105
  24. PAROXETINE [Interacting]
     Active Substance: PAROXETINE
     Dosage: 60 MILLIGRAM, QD (20 MG THREE TIMES A DAY (PHARMACEUTICAL DOSAGE FORM: TABLET)60 MG, ONCE PER DAY )
     Route: 048
     Dates: start: 19990801, end: 201105
  25. PAROXETINE [Interacting]
     Active Substance: PAROXETINE
     Dosage: 40 MILLIGRAM, QD (20 MG THREE TIMES A DAY)40 MG,QD)
     Route: 048
     Dates: start: 201105, end: 20110706
  26. PAROXETINE [Interacting]
     Active Substance: PAROXETINE
     Dosage: 60 MILLIGRAM, QD (60 MG, ONCE PER DAY)
     Route: 048
     Dates: start: 1996, end: 201105
  27. PAROXETINE [Interacting]
     Active Substance: PAROXETINE
     Dosage: UNK
     Route: 065
     Dates: start: 201012
  28. PAROXETINE [Interacting]
     Active Substance: PAROXETINE
     Dosage: UNK
     Route: 065
     Dates: start: 20081201, end: 20101210
  29. PAROXETINE [Interacting]
     Active Substance: PAROXETINE
     Dosage: 20 MILLIGRAM, TID(20 MG, 3 TIMES PER DAY )
     Route: 065
     Dates: start: 1997, end: 201105
  30. PAROXETINE [Interacting]
     Active Substance: PAROXETINE
     Dosage: 20 MILLIGRAM, TID(20 MG, 3 TIMES PER DAY  )
     Route: 048
     Dates: start: 199908, end: 201105
  31. PAROXETINE [Interacting]
     Active Substance: PAROXETINE
     Dosage: UNK
     Route: 065
  32. PAROXETINE [Interacting]
     Active Substance: PAROXETINE
     Dosage: 60 MILLIGRAM, TID(60 MG, 3 TIMES PER DAY  )
     Route: 048
  33. PAROXETINE [Interacting]
     Active Substance: PAROXETINE
     Dosage: UNK
     Route: 048
     Dates: start: 1999
  34. PAROXETINE [Interacting]
     Active Substance: PAROXETINE
     Dosage: 60 MILLIGRAM, QD (60 MG, ONCE PER DAY)
     Route: 048
     Dates: start: 1997, end: 201105
  35. LORAZEPAM [Interacting]
     Active Substance: LORAZEPAM
     Indication: Sedation
     Dosage: 1 MILLIGRAM(1 MG, UNK1 MG, ONCE PER DAY  )
     Route: 048
     Dates: start: 20110725
  36. LORAZEPAM [Interacting]
     Active Substance: LORAZEPAM
     Dosage: 4 MILLIGRAM, QID(4 MG, 4 TIMES PER DAY  )
     Route: 048
     Dates: start: 20110224, end: 20110410
  37. LORAZEPAM [Interacting]
     Active Substance: LORAZEPAM
     Dosage: 1 MILLIGRAM, QID(1 MG, 4 TIMES PER DAY  )
     Route: 048
     Dates: start: 20110224, end: 20110410
  38. LORAZEPAM [Interacting]
     Active Substance: LORAZEPAM
     Dosage: 4 MILLIGRAM, QD (4 MG, ONCE PER DAY)
     Route: 048
     Dates: start: 20110523, end: 20110627
  39. LORAZEPAM [Interacting]
     Active Substance: LORAZEPAM
     Dosage: 4 MILLIGRAM, OD(4 MG, ONCE PER DAY)
     Route: 065
     Dates: start: 20110523, end: 20110627
  40. LORAZEPAM [Interacting]
     Active Substance: LORAZEPAM
     Dosage: 4 MILLIGRAM, OD(4 MG, ONCE PER DAY )
     Route: 065
     Dates: start: 20110202, end: 20110410
  41. LORAZEPAM [Interacting]
     Active Substance: LORAZEPAM
     Dosage: 1 MILLIGRAM, QID(1 MG, 4 TIMES PER DAY  )
     Route: 048
     Dates: start: 20110523, end: 20110627
  42. LORAZEPAM [Interacting]
     Active Substance: LORAZEPAM
     Dosage: 16 MILLIGRAM(16 MG, Q)D (4 MG QID)
     Route: 065
     Dates: start: 20110523, end: 20110627
  43. LORAZEPAM [Interacting]
     Active Substance: LORAZEPAM
     Dosage: 1 MILLIGRAM, QD (1 MG, UNK)
     Route: 048
     Dates: start: 20110523, end: 20110627
  44. LORAZEPAM [Interacting]
     Active Substance: LORAZEPAM
     Dosage: UNK UNK, QD
     Route: 048
     Dates: start: 20110224, end: 20110410
  45. LORAZEPAM [Interacting]
     Active Substance: LORAZEPAM
     Dosage: 4 MILLIGRAM, QD
     Route: 048
     Dates: start: 20110224, end: 20110410
  46. MIRTAZAPINE [Interacting]
     Active Substance: MIRTAZAPINE
     Indication: Depression
     Dosage: 30 MILLIGRAM(30MG IN THE DAY AND 15MG AT NIGHT30 MG, ONCE) PER DAY
     Route: 065
     Dates: start: 20110224, end: 20110506
  47. MIRTAZAPINE [Interacting]
     Active Substance: MIRTAZAPINE
     Indication: Psychotic disorder
     Dosage: 30 MILLIGRAM, QD (30 MG IN THE DAY AND 15 MG AT NIGHT30 MG, ONCE PER DAY  )
     Route: 048
     Dates: start: 20101007, end: 20101012
  48. MIRTAZAPINE [Interacting]
     Active Substance: MIRTAZAPINE
     Dosage: UNK(UNK (30MG IN THE DAY AND 15MG AT NIGHT)  )
     Route: 065
  49. MIRTAZAPINE [Interacting]
     Active Substance: MIRTAZAPINE
     Dosage: 30 MILLIGRAM, QD (30 MG IN THE DAY AND 15 MG AT NIGHT30 MG, ONCE PER DAY (UNSURE))
     Route: 048
     Dates: start: 20100923, end: 20101108
  50. MIRTAZAPINE [Interacting]
     Active Substance: MIRTAZAPINE
     Dosage: 15 MILLIGRAM(30MG IN THE DAY AND 15MG AT NIGHT15 MG, UNK (30MG IN THE DAY AND 15MG AT NIGHT)  )
     Route: 065
     Dates: start: 20110224, end: 20110506
  51. MIRTAZAPINE [Interacting]
     Active Substance: MIRTAZAPINE
     Dosage: 15 MILLIGRAM, QD (15 MG, QD (30 MG IN THE DAY AND 15 MG AT NIGHT, TABLET)15 MG, 2 TIMES PER DAY , 30
     Route: 065
     Dates: start: 20101007, end: 20101012
  52. MIRTAZAPINE [Interacting]
     Active Substance: MIRTAZAPINE
     Dosage: UNK
     Route: 065
     Dates: start: 20100923, end: 20101108
  53. MIRTAZAPINE [Interacting]
     Active Substance: MIRTAZAPINE
     Dosage: 30 MILLIGRAM, QD (30 MG, ONCE PER DAY)
     Route: 048
  54. MIRTAZAPINE [Interacting]
     Active Substance: MIRTAZAPINE
     Dosage: 60 MILLIGRAM, QD (UNSURE)
     Route: 048
     Dates: start: 20100923, end: 20101108
  55. PHOSPHORUS [Interacting]
     Active Substance: PHOSPHORUS
     Indication: Product used for unknown indication
     Dosage: UNK (UNK,UNK)
     Route: 065
  56. PHOSPHORUS [Interacting]
     Active Substance: PHOSPHORUS
     Dosage: UNK
     Route: 065
  57. PROCYCLIDINE [Interacting]
     Active Substance: PROCYCLIDINE
     Indication: Oculogyric crisis
     Dosage: 5 MG, TID(5 MG, TID  )
     Route: 048
     Dates: start: 20110503, end: 20110510
  58. PROCYCLIDINE [Interacting]
     Active Substance: PROCYCLIDINE
     Indication: Extrapyramidal disorder
     Dosage: 5 MILLIGRAM, OD(5 MG, ONCE PER DAY )
     Route: 048
     Dates: start: 1995, end: 1995
  59. PROCYCLIDINE [Interacting]
     Active Substance: PROCYCLIDINE
     Dosage: 15 MILLIGRAM, QD ((15 MG, QD15 MG, ONCE PER DAY (15 MG, QD, 5MG, TID)  ))
     Route: 048
     Dates: start: 20110503, end: 20110510
  60. PROCYCLIDINE [Interacting]
     Active Substance: PROCYCLIDINE
     Dosage: 20 MILLIGRAM(20 MG, QD, IN 1ST TRIMESTER  )
     Route: 048
     Dates: start: 20110415
  61. PROCYCLIDINE [Interacting]
     Active Substance: PROCYCLIDINE
     Dosage: 20 MILLIGRAM, QD (20 MG, ONCE PER DAY  )
     Route: 048
     Dates: start: 20110324, end: 20110506
  62. PROCYCLIDINE [Interacting]
     Active Substance: PROCYCLIDINE
     Dosage: 5 MILLIGRAM, OD(~5 MG, ONCE PER DAY  )
     Route: 048
     Dates: start: 1995, end: 1996
  63. PROCYCLIDINE [Interacting]
     Active Substance: PROCYCLIDINE
     Dosage: 5 MILLIGRAM, TID
     Route: 048
     Dates: start: 20110503, end: 20110510
  64. PROCYCLIDINE [Interacting]
     Active Substance: PROCYCLIDINE
     Dosage: UNK
     Route: 065
     Dates: start: 20110415
  65. PROCYCLIDINE [Interacting]
     Active Substance: PROCYCLIDINE
     Dosage: 5 MILLIGRAM, OD(5 MG, ONCE PER DAY  )
     Route: 048
     Dates: start: 20110503, end: 20110510
  66. PROCYCLIDINE [Interacting]
     Active Substance: PROCYCLIDINE
     Dosage: 5 MILLIGRAM, QD (5 MG, ONCE PER DAY)
     Route: 048
     Dates: start: 20110503, end: 20110510
  67. PROCYCLIDINE [Interacting]
     Active Substance: PROCYCLIDINE
     Dosage: 40 MILLIGRAM (40 MG,UNK)
     Route: 048
     Dates: start: 201105, end: 20110706
  68. PAROXETINE HYDROCHLORIDE [Interacting]
     Active Substance: PAROXETINE HYDROCHLORIDE
     Indication: Depression
     Dosage: 60 MILLIGRAM, QD  (20 MILLIGRAM, TID60 MG, ONCE PER DAY,UNINTERRUPTED )
     Route: 048
     Dates: start: 1997, end: 201105
  69. PAROXETINE HYDROCHLORIDE [Interacting]
     Active Substance: PAROXETINE HYDROCHLORIDE
     Dosage: UNK
     Route: 048
     Dates: start: 201012
  70. PAROXETINE HYDROCHLORIDE [Interacting]
     Active Substance: PAROXETINE HYDROCHLORIDE
     Dosage: 40 MILLIGRAM(40 MG, QD/ INTERRUPTED40 MG,UNK (20 MG (2 PER DAY)) UNK, UNK (INTERRUPTED))
     Route: 048
     Dates: start: 201105, end: 20110706
  71. PAROXETINE HYDROCHLORIDE [Interacting]
     Active Substance: PAROXETINE HYDROCHLORIDE
     Dosage: 60 MILLIGRAM, QD (60 MG, ONCE PER DAY (20 MG, THREE TIMES PER DAY))
     Route: 048
     Dates: start: 19990801, end: 201105
  72. PAROXETINE HYDROCHLORIDE [Interacting]
     Active Substance: PAROXETINE HYDROCHLORIDE
     Dosage: 1 DOSAGE FORM, QD (1 DOSAGE FORM, ONCE PER DAY)
     Route: 048
     Dates: start: 200812, end: 20101210
  73. PAROXETINE HYDROCHLORIDE [Interacting]
     Active Substance: PAROXETINE HYDROCHLORIDE
     Dosage: 20 MILLIGRAM, BID
     Route: 048
     Dates: start: 2011, end: 20110706
  74. PAROXETINE HYDROCHLORIDE [Interacting]
     Active Substance: PAROXETINE HYDROCHLORIDE
     Dosage: 20 MILLIGRAM(INTERRUPTED20 MG, UNK (INTERRUPTED)  )
     Route: 048
     Dates: start: 1997
  75. PAROXETINE HYDROCHLORIDE [Interacting]
     Active Substance: PAROXETINE HYDROCHLORIDE
     Dosage: 20 MILLIGRAM, TID  (20 MG THREE TIMES PER DAY20 MG, 3 TIMES PER DAY (NTERRUPTED)  )
     Route: 048
     Dates: start: 19990801, end: 201105
  76. PAROXETINE HYDROCHLORIDE [Interacting]
     Active Substance: PAROXETINE HYDROCHLORIDE
     Dosage: 180 MILLIGRAM, TID
     Route: 065
     Dates: start: 19990801, end: 201105
  77. PAROXETINE HYDROCHLORIDE [Interacting]
     Active Substance: PAROXETINE HYDROCHLORIDE
     Dosage: 20 MILLIGRAM, TID
     Route: 065
     Dates: start: 201105, end: 20110706
  78. PAROXETINE HYDROCHLORIDE [Interacting]
     Active Substance: PAROXETINE HYDROCHLORIDE
     Dosage: UNK
     Route: 065
     Dates: start: 1999
  79. PAROXETINE HYDROCHLORIDE [Interacting]
     Active Substance: PAROXETINE HYDROCHLORIDE
     Dosage: 20 MILLIGRAM, TID
     Route: 048
     Dates: start: 2011, end: 201105
  80. PAROXETINE HYDROCHLORIDE [Interacting]
     Active Substance: PAROXETINE HYDROCHLORIDE
     Dosage: 60 MILLIGRAM, QD
     Route: 048
     Dates: start: 1999, end: 201105
  81. PAROXETINE HYDROCHLORIDE [Interacting]
     Active Substance: PAROXETINE HYDROCHLORIDE
     Dosage: 40 MILLIGRAM, QD (40 MG, ONCE PER DAY)
     Route: 048
  82. TRAMADOL [Interacting]
     Active Substance: TRAMADOL
     Indication: Neck pain
     Dosage: UNK(UNSPECIFIED, 50-100, 4 CYCLICALUNK, UNK (4 CYCLICAL, QD) UNK, )
     Route: 048
     Dates: start: 20080722
  83. TRAMADOL [Interacting]
     Active Substance: TRAMADOL
     Indication: Oculogyric crisis
     Dosage: 8 MILLIGRAM
     Route: 048
     Dates: start: 20110725
  84. TRAMADOL [Interacting]
     Active Substance: TRAMADOL
     Indication: Iontophoresis
     Dosage: 5 MILLIGRAM
     Route: 065
     Dates: start: 1995, end: 1996
  85. TRAMADOL [Interacting]
     Active Substance: TRAMADOL
     Indication: Analgesic therapy
     Dosage: 4 MILLIGRAM
     Route: 048
     Dates: start: 20081201, end: 20101210
  86. TRAMADOL [Interacting]
     Active Substance: TRAMADOL
     Indication: Back pain
     Dosage: UNK
     Route: 065
     Dates: start: 2008, end: 2009
  87. TRAMADOL [Interacting]
     Active Substance: TRAMADOL
     Indication: Pain
     Dosage: 4 DOSAGE FORM(~4 DOSAGE FORM, UNK  )
     Route: 048
  88. TRAMADOL [Interacting]
     Active Substance: TRAMADOL
     Dosage: 20 MILLIGRAM
     Route: 065
     Dates: start: 20110725
  89. TRAMADOL [Interacting]
     Active Substance: TRAMADOL
     Dosage: 1 DOSAGE FORM(~1 DOSAGE FORM, UNK  )
     Route: 065
     Dates: start: 20110725
  90. TRAMADOL [Interacting]
     Active Substance: TRAMADOL
     Dosage: 100 MILLIGRAM, OD
     Route: 048
     Dates: start: 20081201, end: 20101210
  91. TRAMADOL [Interacting]
     Active Substance: TRAMADOL
     Dosage: UNK
     Route: 065
  92. TRAMADOL [Interacting]
     Active Substance: TRAMADOL
     Dosage: UNK
     Route: 065
  93. DOMPERIDONE [Interacting]
     Active Substance: DOMPERIDONE
     Indication: Product used for unknown indication
     Dosage: UNK, UNK
     Route: 048
     Dates: start: 20100923, end: 20101108
  94. DOMPERIDONE [Interacting]
     Active Substance: DOMPERIDONE
     Dosage: UNK
     Route: 065
  95. DOMPERIDONE [Interacting]
     Active Substance: DOMPERIDONE
     Dosage: UNK
     Route: 065
  96. QUETIAPINE [Interacting]
     Active Substance: QUETIAPINE
     Indication: Psychotic disorder
     Dosage: 300 MILLIGRAM
     Route: 048
     Dates: start: 20110224, end: 20110506
  97. QUETIAPINE [Interacting]
     Active Substance: QUETIAPINE
     Indication: Serotonin syndrome
     Dosage: UNK
     Route: 048
     Dates: start: 19990801, end: 20110706
  98. QUETIAPINE [Interacting]
     Active Substance: QUETIAPINE
     Dosage: UNK
     Route: 065
  99. CLONAZEPAM [Interacting]
     Active Substance: CLONAZEPAM
     Indication: Sedation
     Dosage: UNK(UNSUREUNK, UNK (UNSURE) )
     Route: 048
     Dates: start: 20110224, end: 20110410
  100. TRAMADOL HYDROCHLORIDE [Suspect]
     Active Substance: TRAMADOL HYDROCHLORIDE
     Indication: Back pain
     Dosage: 4 MILLIGRAM, QD (4 MG, ONCE PER DAY( (50-100 MG QD))
     Route: 048
     Dates: start: 20081201, end: 20101201
  101. TRAMADOL HYDROCHLORIDE [Suspect]
     Active Substance: TRAMADOL HYDROCHLORIDE
     Indication: Analgesic therapy
     Dosage: 8 MILLIGRAM
     Route: 065
     Dates: start: 20110727
  102. TRAMADOL HYDROCHLORIDE [Suspect]
     Active Substance: TRAMADOL HYDROCHLORIDE
     Indication: Neck pain
     Dosage: UNK UNK, UNK (4 UNK, QD)
     Route: 048
     Dates: start: 20080722
  103. TRAMADOL HYDROCHLORIDE [Suspect]
     Active Substance: TRAMADOL HYDROCHLORIDE
     Indication: Oculogyric crisis
     Dosage: UNK (UNSPECIFIED, 50-100, 4 CYCLICAL)
     Route: 048
     Dates: start: 20080722
  104. TRAMADOL HYDROCHLORIDE [Suspect]
     Active Substance: TRAMADOL HYDROCHLORIDE
     Indication: Analgesic therapy
     Dosage: 5 MILLIGRAM
     Route: 044
     Dates: start: 1995, end: 1996
  105. TRAMADOL HYDROCHLORIDE [Suspect]
     Active Substance: TRAMADOL HYDROCHLORIDE
     Dosage: 4 DOSAGE FORM
     Route: 048
  106. TRAMADOL HYDROCHLORIDE [Suspect]
     Active Substance: TRAMADOL HYDROCHLORIDE
     Dosage: 8 MILLIGRAM
     Route: 065
     Dates: start: 20110725
  107. TRAMADOL HYDROCHLORIDE [Suspect]
     Active Substance: TRAMADOL HYDROCHLORIDE
     Dosage: 4 MILLIGRAM, QD (4 MG, ONCE PER DAY( (50-100 MG QD)))
     Route: 048
     Dates: start: 20081201, end: 20101201
  108. TRAMADOL HYDROCHLORIDE [Suspect]
     Active Substance: TRAMADOL HYDROCHLORIDE
     Dosage: UNK
     Route: 044
     Dates: start: 20081208, end: 20101210
  109. TRAMADOL HYDROCHLORIDE [Suspect]
     Active Substance: TRAMADOL HYDROCHLORIDE
     Dosage: UNK
     Route: 048
     Dates: start: 2008, end: 2009
  110. TRAMADOL HYDROCHLORIDE [Suspect]
     Active Substance: TRAMADOL HYDROCHLORIDE
     Dosage: 1 DOSAGE FORM
     Route: 065
     Dates: start: 20110725
  111. TRAMADOL HYDROCHLORIDE [Suspect]
     Active Substance: TRAMADOL HYDROCHLORIDE
     Dosage: UNK (DISCONTINUED AFTER 4 OR 5 DAYS)
     Route: 048
     Dates: start: 20081201, end: 20101210
  112. CODEINE [Interacting]
     Active Substance: CODEINE
     Indication: Serotonin syndrome
     Dosage: UNK UNK, QD
     Route: 048
     Dates: start: 20110224, end: 20110410
  113. CODEINE [Interacting]
     Active Substance: CODEINE
     Indication: Analgesic therapy
     Dosage: UNK (24 - EVERY HOUR)
     Route: 048
     Dates: start: 20110715, end: 20110723
  114. CODEINE [Interacting]
     Active Substance: CODEINE
     Dosage: UNK, QD
     Route: 048
     Dates: start: 2008, end: 2008
  115. CODEINE [Interacting]
     Active Substance: CODEINE
     Dosage: UNK, QD (15-30 MG)
     Route: 048
     Dates: start: 20110615, end: 20110623
  116. CODEINE [Interacting]
     Active Substance: CODEINE
     Dosage: 120 MILLIGRAM, QD (30 MG, 4 TIMES PER DAY)
     Route: 048
     Dates: start: 2008, end: 2008
  117. CODEINE [Interacting]
     Active Substance: CODEINE
     Dosage: UNK
     Route: 048
     Dates: start: 20110224, end: 20110410
  118. CODEINE [Interacting]
     Active Substance: CODEINE
     Dosage: 120 MILLIGRAM, QD (30 MG, 4 TIMES PER DAY)
     Route: 048
     Dates: start: 2002, end: 2002
  119. CODEINE [Interacting]
     Active Substance: CODEINE
     Dosage: 120 MILLIGRAM, QD (UNK, UNK (EVERY 24 HOURS) (15-30 MG))
     Route: 048
     Dates: start: 20110615, end: 20110723
  120. AMITRIPTYLINE HYDROCHLORIDE [Suspect]
     Active Substance: AMITRIPTYLINE HYDROCHLORIDE
     Indication: Serotonin syndrome
     Dosage: 25 MILLIGRAM, QD 25 MG, ONCE PER DAY (25 MG AT NIGHT)
     Route: 065
     Dates: start: 20110810
  121. AMITRIPTYLINE HYDROCHLORIDE [Suspect]
     Active Substance: AMITRIPTYLINE HYDROCHLORIDE
     Indication: Muscle spasms
     Dosage: UNK  (AT NIGHT)
     Route: 065
  122. AMITRIPTYLINE HYDROCHLORIDE [Suspect]
     Active Substance: AMITRIPTYLINE HYDROCHLORIDE
     Indication: Drug withdrawal syndrome
     Dosage: UNK
     Route: 065
  123. AMITRIPTYLINE HYDROCHLORIDE [Suspect]
     Active Substance: AMITRIPTYLINE HYDROCHLORIDE
     Indication: Sedation
     Dosage: UNK
     Route: 065
  124. AMITRIPTYLINE HYDROCHLORIDE [Suspect]
     Active Substance: AMITRIPTYLINE HYDROCHLORIDE
     Indication: Neuralgia
     Dosage: UNK
     Route: 065
  125. AMITRIPTYLINE HYDROCHLORIDE [Suspect]
     Active Substance: AMITRIPTYLINE HYDROCHLORIDE
     Dosage: UNK
     Route: 065
  126. AMITRIPTYLINE HYDROCHLORIDE [Suspect]
     Active Substance: AMITRIPTYLINE HYDROCHLORIDE
     Dosage: UNK  (AT NIGHT)
     Route: 065

REACTIONS (96)
  - Cyanosis [Unknown]
  - Serotonin syndrome [Not Recovered/Not Resolved]
  - Musculoskeletal stiffness [Unknown]
  - Hypoaesthesia oral [Unknown]
  - Contusion [Not Recovered/Not Resolved]
  - Dissociation [Not Recovered/Not Resolved]
  - Disorientation [Not Recovered/Not Resolved]
  - Incontinence [Not Recovered/Not Resolved]
  - Hypoaesthesia [Not Recovered/Not Resolved]
  - Skin discolouration [Not Recovered/Not Resolved]
  - Aphasia [Not Recovered/Not Resolved]
  - Depersonalisation/derealisation disorder [Not Recovered/Not Resolved]
  - Tremor [Not Recovered/Not Resolved]
  - Muscle spasms [Not Recovered/Not Resolved]
  - Derealisation [Not Recovered/Not Resolved]
  - Fatigue [Unknown]
  - Restless legs syndrome [Not Recovered/Not Resolved]
  - Somnolence [Not Recovered/Not Resolved]
  - Premature labour [Unknown]
  - Psychotic disorder [Recovered/Resolved]
  - Neuroleptic malignant syndrome [Unknown]
  - Schizophrenia [Unknown]
  - Speech disorder [Unknown]
  - Paralysis [Unknown]
  - Hallucinations, mixed [Unknown]
  - Hallucination [Unknown]
  - Delirium [Unknown]
  - Dyspnoea [Unknown]
  - Disturbance in attention [Unknown]
  - Swelling face [Unknown]
  - Sensory loss [Unknown]
  - Mania [Unknown]
  - Mood swings [Unknown]
  - Muscle disorder [Unknown]
  - Paraesthesia [Unknown]
  - H1N1 influenza [Unknown]
  - Visual impairment [Unknown]
  - Gait disturbance [Unknown]
  - Cyanosis [Unknown]
  - Tinnitus [Unknown]
  - Tachycardia [Unknown]
  - Dizziness [Unknown]
  - Urinary retention [Unknown]
  - Muscle rigidity [Unknown]
  - Dyskinesia [Unknown]
  - Depression [Unknown]
  - Cogwheel rigidity [Unknown]
  - Agitation [Unknown]
  - Anxiety [Unknown]
  - Seizure [Unknown]
  - Asthenia [Unknown]
  - Headache [Unknown]
  - Diarrhoea [Unknown]
  - Dystonia [Unknown]
  - Swollen tongue [Unknown]
  - Decreased appetite [Unknown]
  - Blood sodium decreased [Unknown]
  - Vision blurred [Unknown]
  - Drooling [Unknown]
  - Emotional disorder [Unknown]
  - Pyrexia [Unknown]
  - Gastric pH decreased [Unknown]
  - Feeling of despair [Unknown]
  - Heart rate increased [Unknown]
  - Feeling jittery [Unknown]
  - Arthralgia [Unknown]
  - Menstrual disorder [Unknown]
  - Nightmare [Unknown]
  - Eye pain [Unknown]
  - Confusional state [Not Recovered/Not Resolved]
  - Mydriasis [Unknown]
  - Illness [Unknown]
  - Sleep disorder [Unknown]
  - Parosmia [Unknown]
  - Hyperhidrosis [Unknown]
  - Balance disorder [Unknown]
  - Restlessness [Not Recovered/Not Resolved]
  - Limb injury [Unknown]
  - Eye pain [Not Recovered/Not Resolved]
  - Contusion [Unknown]
  - Feeling of body temperature change [Unknown]
  - Suicidal ideation [Not Recovered/Not Resolved]
  - Drug interaction [Unknown]
  - Toxicity to various agents [Unknown]
  - Drug withdrawal syndrome [Unknown]
  - Pallor [Unknown]
  - Pruritus [Unknown]
  - Vomiting [Unknown]
  - Fatigue [Unknown]
  - Off label use [Unknown]
  - Therapeutic product ineffective [Unknown]
  - Drug ineffective [Unknown]
  - Exposure during pregnancy [Unknown]
  - Maternal exposure during pregnancy [Unknown]
  - Intentional product misuse [Unknown]
  - Overdose [Unknown]

NARRATIVE: CASE EVENT DATE: 20030101
